FAERS Safety Report 9242325 (Version 1)
Quarter: 2013Q2

REPORT INFORMATION
  Report Type: Spontaneous
  Country: FR (occurrence: FR)
  Receive Date: 20130419
  Receipt Date: 20130419
  Transmission Date: 20140414
  Serious: Yes (Hospitalization)
  Sender: FDA-Public Use
  Company Number: FR-VERTEX PHARMACEUTICALS INC.-2013-005176

PATIENT
  Age: 62 Year
  Sex: Male
  Weight: 70 kg

DRUGS (8)
  1. INCIVO [Suspect]
     Indication: HEPATITIS C
     Dosage: 750 MG, TID
     Route: 065
     Dates: start: 20120314, end: 20120606
  2. COPEGUS [Suspect]
     Indication: HEPATITIS C
     Dosage: DOSAGE FORM: UNSPECIFIED
     Route: 065
     Dates: start: 20120215
  3. PEGASYS [Suspect]
     Indication: HEPATITIS C
     Dosage: DOSAGE FORM: UNSPECIFIED
     Route: 065
     Dates: start: 20120215
  4. DAFALGAN [Concomitant]
     Indication: INFLUENZA
     Dosage: DOSAGE FORM: UNSPECIFIED, AS REQUIRED
     Route: 065
     Dates: start: 20120215
  5. DEXERYL [Concomitant]
     Indication: DRY SKIN
     Dosage: DOSAGE FORM: UNSPECIFIED
     Route: 065
     Dates: start: 20120215
  6. NUTRITIONAL SUPPLEMENT [Concomitant]
     Indication: DECREASED APPETITE
     Dosage: DOSAGE FORM: UNSPECIFIED
     Route: 065
     Dates: start: 20120606
  7. METHADONE [Concomitant]
     Indication: PRODUCT USED FOR UNKNOWN INDICATION
     Dosage: DOSAGE FORM: UNSPECIFIED, WEANING
     Route: 065
  8. NEORECORMON [Concomitant]
     Indication: ANAEMIA
     Dosage: DOSAGE FORM: UNSPECIFIED, 30000 (UNITS UNKNOWN)
     Route: 065
     Dates: start: 20120607

REACTIONS (3)
  - Anaemia macrocytic [Unknown]
  - Pancytopenia [Unknown]
  - Anaemia [Recovered/Resolved]
